FAERS Safety Report 4761560-4 (Version None)
Quarter: 2005Q3

REPORT INFORMATION
  Report Type: 
  Country: None (occurrence: None)
  Receive Date: 20050901
  Receipt Date: 20041122
  Transmission Date: 20060218
  Serious: Yes (Other)
  Sender: FDA-Public Use
  Company Number: 15438

PATIENT
  Age: 38 Year
  Sex: Female
  Weight: 90 kg

DRUGS (6)
  1. PACLITAXEL [Suspect]
     Indication: BREAST CANCER
     Dosage: 13MG IV X1
     Route: 042
     Dates: start: 20041119
  2. PACLITAXEL [Suspect]
  3. ZOFRAN [Concomitant]
  4. DECADRON [Concomitant]
  5. PEPCID [Concomitant]
  6. BENADRYL [Concomitant]

REACTIONS (1)
  - FLUSHING [None]
